FAERS Safety Report 10430618 (Version 1)
Quarter: 2014Q3

REPORT INFORMATION
  Report Type: Spontaneous
  Country: US (occurrence: None)
  Receive Date: 20140813
  Receipt Date: 20140813
  Transmission Date: 20150326
  Serious: Yes (Hospitalization)
  Sender: FDA-Public Use
  Company Number: 2013SE19060

PATIENT
  Age: 4 Month
  Sex: Male

DRUGS (1)
  1. SYNAGIS [Suspect]
     Active Substance: PALIVIZUMAB

REACTIONS (1)
  - Respiratory syncytial virus infection [None]

NARRATIVE: CASE EVENT DATE: 20130313
